FAERS Safety Report 26040131 (Version 3)
Quarter: 2025Q4

REPORT INFORMATION
  Report Type: Spontaneous
  Country: US (occurrence: US)
  Receive Date: 20251113
  Receipt Date: 20251229
  Transmission Date: 20260119
  Serious: No
  Sender: TOLMAR
  Company Number: US-Tolmar-TLM-2025-08265

PATIENT

DRUGS (2)
  1. ELIGARD [Suspect]
     Active Substance: LEUPROLIDE ACETATE
     Indication: Product used for unknown indication
     Dosage: NDC: 62935-0227-10?LOT: 15369CUS EXP: 31/12/2026?SYRINGE A: LOT: 15369AUS EXP: 1/2027?SYRINGE B: LOT
  2. DEVICE [Suspect]
     Active Substance: DEVICE
     Indication: Product used for unknown indication

REACTIONS (4)
  - Wrong technique in product usage process [Unknown]
  - Intercepted product preparation error [Unknown]
  - Device leakage [Unknown]
  - Product quality issue [Unknown]
